FAERS Safety Report 8233963-7 (Version None)
Quarter: 2012Q1

REPORT INFORMATION
  Report Type: 
  Country: None (occurrence: None)
  Receive Date: 20120326
  Receipt Date: 20120313
  Transmission Date: 20120608
  Serious: Yes (Other)
  Sender: FDA-Public Use
  Company Number: US-SANOFI-AVENTIS-2012SA017682

PATIENT
  Sex: Female

DRUGS (4)
  1. LANTUS [Suspect]
     Route: 058
  2. DRUG USED IN DIABETES [Concomitant]
  3. SOLOSTAR [Suspect]
  4. BYETTA [Suspect]
     Route: 065

REACTIONS (2)
  - WEIGHT DECREASED [None]
  - GLYCOSYLATED HAEMOGLOBIN INCREASED [None]
